FAERS Safety Report 6422119-6 (Version None)
Quarter: 2009Q4

REPORT INFORMATION
  Report Type: 
  Country: None (occurrence: None)
  Receive Date: 20091030
  Receipt Date: 20091019
  Transmission Date: 20100525
  Serious: Yes (Other)
  Sender: FDA-Public Use
  Company Number: US-PFIZER INC-2009285322

PATIENT
  Sex: Male
  Weight: 84 kg

DRUGS (3)
  1. SUNITINIB MALATE [Suspect]
     Indication: RENAL CELL CARCINOMA
     Dosage: 50 MG, 1X/DAY
     Route: 048
     Dates: start: 20090402
  2. HEPARIN [Suspect]
     Indication: PULMONARY EMBOLISM
     Dosage: 25000 UNITS PER 250 ML
     Route: 041
     Dates: start: 20090402, end: 20090406
  3. WARFARIN [Suspect]
     Indication: PULMONARY EMBOLISM
     Dosage: 5-10 MG
     Dates: start: 20090402, end: 20090405

REACTIONS (4)
  - CARDIAC ARREST [None]
  - PULMONARY ALVEOLAR HAEMORRHAGE [None]
  - PULMONARY EMBOLISM [None]
  - RESPIRATORY FAILURE [None]
